FAERS Safety Report 6703073-6 (Version None)
Quarter: 2010Q2

REPORT INFORMATION
  Report Type: 
  Country: None (occurrence: None)
  Receive Date: 20100427
  Receipt Date: 20100416
  Transmission Date: 20101027
  Serious: Yes (Other)
  Sender: FDA-Public Use
  Company Number: 2010SP022343

PATIENT
  Sex: Female

DRUGS (1)
  1. MARVELON 28 (DESOGESTREL/ETHINYLESTRADIOL /00570801/) [Suspect]
     Indication: DRUG USE FOR UNKNOWN INDICATION
     Dosage: 1 DF;QD;PO
     Route: 048
     Dates: start: 20100301

REACTIONS (1)
  - WHITE BLOOD CELL COUNT DECREASED [None]
